FAERS Safety Report 20436166 (Version 1)
Quarter: 2022Q1

REPORT INFORMATION
  Report Type: Spontaneous
  Country: US (occurrence: US)
  Receive Date: 20220207
  Receipt Date: 20220207
  Transmission Date: 20220423
  Serious: No
  Sender: FDA-Public Use
  Company Number: US-HETERO-HET2022US00266

PATIENT

DRUGS (1)
  1. RITONAVIR [Suspect]
     Active Substance: RITONAVIR
     Indication: Product used for unknown indication
     Dosage: FOR ABOUT 3 DAYS
     Route: 065

REACTIONS (4)
  - Cardiac disorder [Unknown]
  - Diarrhoea [Unknown]
  - Dysgeusia [Unknown]
  - Dyspepsia [Unknown]
